FAERS Safety Report 6410869-7 (Version None)
Quarter: 2009Q4

REPORT INFORMATION
  Report Type: 
  Country: None (occurrence: None)
  Receive Date: 20091022
  Receipt Date: 20091020
  Transmission Date: 20100525
  Serious: Yes (Death, Life-Threatening, Hospitalization)
  Sender: FDA-Public Use
  Company Number: PHHO2009GB12368

PATIENT

DRUGS (4)
  1. ZOLEDRONATE T29581+SOLINJ+BM [Suspect]
     Dosage: UNK
     Route: 042
     Dates: start: 20090916
  2. DOCETAXEL [Concomitant]
  3. PREDNISOLONE [Concomitant]
  4. STRONTIUM [Concomitant]

REACTIONS (10)
  - DIARRHOEA [None]
  - DYSPNOEA [None]
  - GRANULOCYTES ABNORMAL [None]
  - LUNG CONSOLIDATION [None]
  - LYMPHOPENIA [None]
  - NEUTROPENIC SEPSIS [None]
  - NEUTROPHIL COUNT ABNORMAL [None]
  - PROSTATE CANCER [None]
  - VOMITING [None]
  - WHITE BLOOD CELL COUNT DECREASED [None]
